FAERS Safety Report 6414450-5 (Version None)
Quarter: 2009Q4

REPORT INFORMATION
  Report Type: 
  Country: None (occurrence: None)
  Receive Date: 20091026
  Receipt Date: 20091013
  Transmission Date: 20100525
  Serious: Yes (Other)
  Sender: FDA-Public Use
  Company Number: PHEH2006US01252

PATIENT
  Sex: Male
  Weight: 84.807 kg

DRUGS (18)
  1. ZOMETA [Suspect]
     Indication: METASTASES TO BONE
     Dosage: 4 MG, QMO
  2. AREDIA [Suspect]
  3. COUMADIN [Concomitant]
  4. ZOLOFT [Concomitant]
     Dosage: 50MG QHS
  5. ASPIRIN [Concomitant]
     Dosage: 81MG UNK
  6. MULTIVITAMIN ^LAPPE^ [Concomitant]
  7. ASCORBIC ACID [Concomitant]
  8. VITAMIN B COMPLEX CAP [Concomitant]
  9. IRON [Concomitant]
  10. CALCIUM [Concomitant]
  11. LOVENOX [Concomitant]
     Dosage: UNK, UNK
  12. ACETAMINOPHEN [Concomitant]
     Dosage: UNK, UNK
  13. ATIVAN [Concomitant]
     Dosage: UNK, UNK
  14. CELEBREX [Concomitant]
     Dosage: UNK, UNK
  15. PREDNISONE TAB [Concomitant]
     Dosage: UNK, UNK
  16. COUMADIN [Concomitant]
     Dosage: UNK, UNK
  17. ANTINEOPLASTIC AGENTS [Concomitant]
     Indication: MULTIPLE MYELOMA
     Dosage: UNK, UNK
     Dates: start: 20000101, end: 20000101
  18. EPOGEN [Concomitant]
     Dosage: UNK, UNK
     Dates: start: 19990101

REACTIONS (50)
  - ABSCESS ORAL [None]
  - ANXIETY [None]
  - ATROPHY [None]
  - BLOOD CALCIUM DECREASED [None]
  - BLOOD GLUCOSE INCREASED [None]
  - BLOOD IMMUNOGLOBULIN A DECREASED [None]
  - BLOOD IMMUNOGLOBULIN M DECREASED [None]
  - BONE DEBRIDEMENT [None]
  - BONE DENSITY INCREASED [None]
  - BONE DISORDER [None]
  - BONE LESION [None]
  - CATARACT [None]
  - CEREBRAL INFARCTION [None]
  - DEPRESSION [None]
  - DIPLOPIA [None]
  - ENDODONTIC PROCEDURE [None]
  - EXCESSIVE GRANULATION TISSUE [None]
  - EXTRASKELETAL OSSIFICATION [None]
  - EYE HAEMORRHAGE [None]
  - FATIGUE [None]
  - FIBULA FRACTURE [None]
  - FRACTURE [None]
  - HEADACHE [None]
  - HERPES VIRUS INFECTION [None]
  - HIP SURGERY [None]
  - IMPAIRED HEALING [None]
  - INFECTION [None]
  - INFLAMMATION [None]
  - INSOMNIA [None]
  - INTERVERTEBRAL DISC DISORDER [None]
  - ISCHAEMIA [None]
  - LIVER FUNCTION TEST ABNORMAL [None]
  - METASTATIC NEOPLASM [None]
  - MUSCLE SPASMS [None]
  - MUSCULOSKELETAL PAIN [None]
  - NUCLEAR MAGNETIC RESONANCE IMAGING ABNORMAL [None]
  - OEDEMA [None]
  - ORAL INFECTION [None]
  - OSTEITIS [None]
  - OSTEONECROSIS [None]
  - OSTEOPENIA [None]
  - OSTEOPOROSIS [None]
  - PAIN [None]
  - PAIN IN JAW [None]
  - PARAESTHESIA [None]
  - PLATELET COUNT DECREASED [None]
  - STEM CELL TRANSPLANT [None]
  - SUBCUTANEOUS ABSCESS [None]
  - TOOTH LOSS [None]
  - X-RAY ABNORMAL [None]
